FAERS Safety Report 21447512 (Version 1)
Quarter: 2022Q4

REPORT INFORMATION
  Report Type: Spontaneous
  Country: IT (occurrence: IT)
  Receive Date: 20221012
  Receipt Date: 20221012
  Transmission Date: 20230113
  Serious: Yes (Other)
  Sender: FDA-Public Use
  Company Number: None

PATIENT
  Age: 72 Year
  Sex: Female

DRUGS (1)
  1. IBANDRONATE SODIUM [Suspect]
     Active Substance: IBANDRONATE SODIUM
     Indication: Osteoporosis
     Dosage: IBANDRONATO SODICO MONOIDRATO
     Dates: start: 2002

REACTIONS (1)
  - Bone sequestrum [Not Recovered/Not Resolved]

NARRATIVE: CASE EVENT DATE: 20220101
